FAERS Safety Report 4302618-3 (Version None)
Quarter: 2004Q1

REPORT INFORMATION
  Report Type: 
  Country: None (occurrence: None)
  Receive Date: 20040217
  Receipt Date: 20031202
  Transmission Date: 20041129
  Serious: Yes (Hospitalization)
  Sender: FDA-Public Use
  Company Number: 200319751US

PATIENT
  Age: 56 Year
  Sex: Female

DRUGS (5)
  1. ALLEGRA-D [Suspect]
     Indication: SINUS DISORDER
     Dosage: PO
     Route: 048
     Dates: start: 20020704, end: 20020704
  2. AVELOX [Concomitant]
  3. AMOXICILLIN [Concomitant]
  4. EFFEXOR [Concomitant]
  5. PSEUDOEPHEDRINE HYDROCHLORIDE (SUDAFED) [Concomitant]

REACTIONS (1)
  - ANAPHYLACTIC REACTION [None]
